FAERS Safety Report 5166720-9 (Version None)
Quarter: 2006Q4

REPORT INFORMATION
  Report Type: 
  Country: None (occurrence: None)
  Receive Date: 20061207
  Receipt Date: 20061129
  Transmission Date: 20070319
  Serious: Yes (Other)
  Sender: FDA-Public Use
  Company Number: US-JNJFOC-20061102422

PATIENT
  Sex: Female
  Weight: 113.4 kg

DRUGS (1)
  1. REMICADE [Suspect]
     Indication: RHEUMATOID ARTHRITIS
     Route: 042

REACTIONS (5)
  - ASTHENIA [None]
  - DEPRESSION [None]
  - NERVOUSNESS [None]
  - SPINAL CORD NEOPLASM [None]
  - TREATMENT NONCOMPLIANCE [None]
